FAERS Safety Report 13515600 (Version 2)
Quarter: 2017Q3

REPORT INFORMATION
  Report Type: Report from Study
  Country: FR (occurrence: FR)
  Receive Date: 20170504
  Receipt Date: 20170711
  Transmission Date: 20171127
  Serious: Yes (Hospitalization, Other)
  Sender: FDA-Public Use
  Company Number: FR-REGENERON PHARMACEUTICALS, INC.-2017-15335

PATIENT

DRUGS (17)
  1. EYLEA [Suspect]
     Active Substance: AFLIBERCEPT
     Dosage: VISIT 13
     Route: 031
     Dates: start: 20160413, end: 20160413
  2. EYLEA [Suspect]
     Active Substance: AFLIBERCEPT
     Dosage: VISIT 6
     Route: 031
     Dates: start: 20150610, end: 20150610
  3. EYLEA [Suspect]
     Active Substance: AFLIBERCEPT
     Indication: NEOVASCULAR AGE-RELATED MACULAR DEGENERATION
     Dosage: INITIAL VISIT TO LEFT EYE
     Route: 031
     Dates: start: 20141126, end: 20141126
  4. EYLEA [Suspect]
     Active Substance: AFLIBERCEPT
     Dosage: VISIT 4
     Route: 031
     Dates: start: 20150415, end: 20150415
  5. EYLEA [Suspect]
     Active Substance: AFLIBERCEPT
     Dosage: VISIT 12
     Route: 031
     Dates: start: 20160316, end: 20160316
  6. EYLEA [Suspect]
     Active Substance: AFLIBERCEPT
     Dosage: VISIT 17
     Route: 031
     Dates: start: 20160914, end: 20160914
  7. EYLEA [Suspect]
     Active Substance: AFLIBERCEPT
     Dosage: VISIT 3
     Route: 031
     Dates: start: 20150318, end: 20150318
  8. EYLEA [Suspect]
     Active Substance: AFLIBERCEPT
     Dosage: VISIT 16
     Route: 031
     Dates: start: 20160720, end: 20160720
  9. EYLEA [Suspect]
     Active Substance: AFLIBERCEPT
     Dosage: VISIT 7
     Route: 031
     Dates: start: 20150826, end: 20150826
  10. EYLEA [Suspect]
     Active Substance: AFLIBERCEPT
     Dosage: VISIT 1
     Route: 031
     Dates: start: 20150107, end: 20150107
  11. EYLEA [Suspect]
     Active Substance: AFLIBERCEPT
     Dosage: VISIT 9
     Route: 031
     Dates: start: 20151105, end: 20151105
  12. EYLEA [Suspect]
     Active Substance: AFLIBERCEPT
     Dosage: VISIT 15
     Route: 031
     Dates: start: 20160525, end: 20160525
  13. OXYBUPROCAINE [Concomitant]
     Active Substance: BENOXINATE
     Indication: ANAESTHESIA PROCEDURE
  14. EYLEA [Suspect]
     Active Substance: AFLIBERCEPT
     Dosage: VISIT 2
     Route: 031
     Dates: start: 20150204, end: 20150204
  15. TETRACAINE. [Concomitant]
     Active Substance: TETRACAINE
     Indication: ANAESTHESIA PROCEDURE
  16. EYLEA [Suspect]
     Active Substance: AFLIBERCEPT
     Dosage: VISIT 10
     Route: 031
     Dates: start: 20160120, end: 20160120
  17. OFLOXACIN. [Concomitant]
     Active Substance: OFLOXACIN
     Indication: PROPHYLAXIS

REACTIONS (2)
  - Renal failure [Recovering/Resolving]
  - Cardiac failure [Recovering/Resolving]

NARRATIVE: CASE EVENT DATE: 20161207
